FAERS Safety Report 6237559-8 (Version None)
Quarter: 2009Q2

REPORT INFORMATION
  Report Type: 
  Country: None (occurrence: None)
  Receive Date: 20090617
  Receipt Date: 20090615
  Transmission Date: 20091009
  Serious: Yes (Other)
  Sender: FDA-Public Use
  Company Number: 1000006815

PATIENT

DRUGS (1)
  1. CELEXA [Suspect]

REACTIONS (1)
  - PARKINSON'S DISEASE [None]
